FAERS Safety Report 17913888 (Version 3)
Quarter: 2021Q2

REPORT INFORMATION
  Report Type: Spontaneous
  Country: US (occurrence: US)
  Receive Date: 20200618
  Receipt Date: 20210629
  Transmission Date: 20210717
  Serious: Yes (Hospitalization)
  Sender: FDA-Public Use
  Company Number: US-TEVA-2020-US-1510324

PATIENT
  Age: 63 Year
  Sex: Male

DRUGS (6)
  1. BUSPIRONE [Interacting]
     Active Substance: BUSPIRONE HYDROCHLORIDE
     Indication: DEPRESSION
     Dosage: CHRONIC REGIMEN
     Route: 065
  2. BUPROPION. [Suspect]
     Active Substance: BUPROPION
     Indication: DEPRESSION
     Dosage: CHRONIC REGIMEN
     Route: 065
  3. TRAZODONE [Interacting]
     Active Substance: TRAZODONE HYDROCHLORIDE
     Indication: DEPRESSION
     Dosage: CHRONIC REGIMEN
     Route: 065
  4. DESVENLAFAXINE. [Interacting]
     Active Substance: DESVENLAFAXINE
     Indication: DEPRESSION
     Dosage: CHRONIC REGIMEN
     Route: 065
  5. ZIPRASIDONE. [Interacting]
     Active Substance: ZIPRASIDONE
     Indication: DEPRESSION
     Dosage: CHRONIC REGIMEN
     Route: 065
  6. KRATOM [Interacting]
     Active Substance: HERBALS\MITRAGYNINE
     Indication: DEPRESSION
     Route: 065

REACTIONS (2)
  - Serotonin syndrome [Recovering/Resolving]
  - Drug interaction [Recovering/Resolving]
